FAERS Safety Report 11890446 (Version 2)
Quarter: 2016Q1

REPORT INFORMATION
  Report Type: Report from Study
  Country: NL (occurrence: NL)
  Receive Date: 20160105
  Receipt Date: 20160321
  Transmission Date: 20160526
  Serious: Yes (Other)
  Sender: FDA-Public Use
  Company Number: NL-CELGENE-NLD-2015101624

PATIENT
  Age: 53 Year
  Sex: Female
  Weight: 81.5 kg

DRUGS (4)
  1. CC-4047 [Suspect]
     Active Substance: POMALIDOMIDE
     Route: 048
     Dates: start: 20150910, end: 20150930
  2. DEXAMETHASONE. [Suspect]
     Active Substance: DEXAMETHASONE
     Route: 048
     Dates: start: 20150910, end: 20151001
  3. CC-4047 [Suspect]
     Active Substance: POMALIDOMIDE
     Indication: PLASMA CELL MYELOMA
     Route: 048
     Dates: start: 20140130, end: 20140219
  4. DEXAMETHASONE. [Suspect]
     Active Substance: DEXAMETHASONE
     Indication: PLASMA CELL MYELOMA
     Route: 048
     Dates: start: 20140130, end: 20140220

REACTIONS (2)
  - Acute kidney injury [Recovered/Resolved with Sequelae]
  - Renal vascular thrombosis [Recovered/Resolved with Sequelae]

NARRATIVE: CASE EVENT DATE: 20151005
